FAERS Safety Report 7138303-2 (Version None)
Quarter: 2010Q4

REPORT INFORMATION
  Report Type: 
  Country: None (occurrence: None)
  Receive Date: 20101118
  Receipt Date: 20101103
  Transmission Date: 20110411
  Serious: Yes (Death)
  Sender: FDA-Public Use
  Company Number: UTC-001928

PATIENT
  Age: 71 Year
  Sex: Female
  Weight: 70.3 kg

DRUGS (1)
  1. TYVASO [Suspect]
     Dosage: (72 MCG), INHALATION
     Route: 055
     Dates: start: 20090917

REACTIONS (1)
  - DEATH [None]
